FAERS Safety Report 14593152 (Version 2)
Quarter: 2018Q2

REPORT INFORMATION
  Report Type: Report from Study
  Country: MX (occurrence: MX)
  Receive Date: 20180302
  Receipt Date: 20180403
  Transmission Date: 20180711
  Serious: Yes (Death, Hospitalization, Other)
  Sender: FDA-Public Use
  Company Number: MX-BAYER-2017-197365

PATIENT
  Age: 63 Year
  Sex: Female
  Weight: 43 kg

DRUGS (4)
  1. NEXAVAR [Suspect]
     Active Substance: SORAFENIB
     Indication: METASTASES TO BONE
     Dosage: 400 MG, BID
     Dates: start: 20171116, end: 20180208
  2. OMEPRAZOLE. [Concomitant]
     Active Substance: OMEPRAZOLE
     Dosage: UNK
  3. NEXAVAR [Suspect]
     Active Substance: SORAFENIB
     Indication: RENAL CELL CARCINOMA STAGE IV
     Dosage: 400 MG, BID
     Dates: start: 20170906
  4. SULINDAC. [Concomitant]
     Active Substance: SULINDAC
     Indication: RADIATION NECROSIS
     Dosage: UNK

REACTIONS (46)
  - Renal cell carcinoma stage IV [Not Recovered/Not Resolved]
  - Gastric ulcer perforation [None]
  - Eating disorder [Not Recovered/Not Resolved]
  - Tearfulness [None]
  - Epigastric discomfort [None]
  - Abdominal abscess [Fatal]
  - Post procedural discomfort [None]
  - Gastric haemorrhage [None]
  - Diarrhoea [Not Recovered/Not Resolved]
  - Pneumonia [Fatal]
  - Haematochezia [Recovered/Resolved]
  - Haematochezia [Not Recovered/Not Resolved]
  - Haematochezia [None]
  - Dizziness [Recovering/Resolving]
  - Peripheral swelling [Not Recovered/Not Resolved]
  - Madarosis [Not Recovered/Not Resolved]
  - Pain in extremity [Not Recovered/Not Resolved]
  - Rash generalised [Not Recovered/Not Resolved]
  - Decreased appetite [Not Recovered/Not Resolved]
  - Asthenia [None]
  - Metastases to bone [Not Recovered/Not Resolved]
  - Loss of consciousness [None]
  - Haemoglobin decreased [Not Recovered/Not Resolved]
  - Haematochezia [Not Recovered/Not Resolved]
  - Insomnia [Recovered/Resolved]
  - Hypotension [Not Recovered/Not Resolved]
  - Underweight [Not Recovered/Not Resolved]
  - Temperature intolerance [Not Recovered/Not Resolved]
  - Peritonitis [Fatal]
  - Tongue blistering [Not Recovered/Not Resolved]
  - Dry skin [Not Recovered/Not Resolved]
  - Fatigue [Not Recovered/Not Resolved]
  - Alopecia [Not Recovered/Not Resolved]
  - Sepsis [Fatal]
  - Abdominal pain upper [None]
  - Haemorrhage [None]
  - Burning sensation [Not Recovered/Not Resolved]
  - Nausea [Not Recovered/Not Resolved]
  - Haematemesis [Not Recovered/Not Resolved]
  - Hypersomnia [Not Recovered/Not Resolved]
  - Therapeutic response unexpected [Not Recovered/Not Resolved]
  - Skin exfoliation [Not Recovered/Not Resolved]
  - Haemorrhage [Fatal]
  - Pain [None]
  - Muscular weakness [None]
  - Haemoglobin decreased [None]

NARRATIVE: CASE EVENT DATE: 20170906
